FAERS Safety Report 8369572-9 (Version None)
Quarter: 2012Q2

REPORT INFORMATION
  Report Type: 
  Country: None (occurrence: None)
  Receive Date: 20120517
  Receipt Date: 20120517
  Transmission Date: 20120825
  Serious: Yes (Other)
  Sender: FDA-Public Use
  Company Number: None

PATIENT
  Age: 69 Year
  Sex: Female
  Weight: 56.6996 kg

DRUGS (1)
  1. FOSAMAX [Suspect]
     Indication: OSTEOPENIA
     Dates: start: 19950101, end: 20080704

REACTIONS (6)
  - GAIT DISTURBANCE [None]
  - TIBIA FRACTURE [None]
  - STRESS FRACTURE [None]
  - FALL [None]
  - FEMUR FRACTURE [None]
  - MEDICAL DEVICE COMPLICATION [None]
